FAERS Safety Report 22521370 (Version 4)
Quarter: 2024Q4

REPORT INFORMATION
  Report Type: Spontaneous
  Country: CA (occurrence: CA)
  Receive Date: 20230605
  Receipt Date: 20241119
  Transmission Date: 20250115
  Serious: Yes (Hospitalization, Other)
  Sender: MYLAN
  Company Number: CA-MYLANLABS-2023M1058725

PATIENT
  Age: 53 Year
  Sex: Female

DRUGS (46)
  1. VENLAFAXINE [Interacting]
     Active Substance: VENLAFAXINE HYDROCHLORIDE
     Indication: Product used for unknown indication
     Dosage: 150 MILLIGRAM
     Route: 065
  2. ALCOHOL [Interacting]
     Active Substance: ALCOHOL
     Indication: Product used for unknown indication
     Dosage: UNK
     Route: 065
  3. PROBIOTICS NOS [Suspect]
     Active Substance: PROBIOTICS NOS
     Indication: Product used for unknown indication
     Dosage: 1 DOSAGE FORM, TID
     Route: 048
  4. BUDESONIDE\FORMOTEROL FUMARATE [Suspect]
     Active Substance: BUDESONIDE\FORMOTEROL FUMARATE
     Indication: Product used for unknown indication
     Dosage: 1 DOSAGE FORM, BID
     Route: 065
  5. BUDESONIDE\FORMOTEROL FUMARATE [Suspect]
     Active Substance: BUDESONIDE\FORMOTEROL FUMARATE
     Dosage: 6.0 MICROGRAM, BID (1 EVERY 0.5 DAYS)
     Route: 065
  6. BUDESONIDE\FORMOTEROL FUMARATE [Suspect]
     Active Substance: BUDESONIDE\FORMOTEROL FUMARATE
     Dosage: 200 MICROGRAM, BID (1 EVERY 0.5 DAYS)
     Route: 065
  7. LINOLEIC ACID, CONJUGATED [Suspect]
     Active Substance: LINOLEIC ACID, CONJUGATED
     Indication: Product used for unknown indication
     Dosage: 1 DOSAGE FORM, TID
     Route: 048
  8. ESTRADIOL [Suspect]
     Active Substance: ESTRADIOL
     Indication: Product used for unknown indication
     Dosage: UNK (1 EVERY 2 MONTHS)
     Route: 062
  9. ESTRADIOL [Suspect]
     Active Substance: ESTRADIOL
     Dosage: 50 MILLIGRAM, QD (1 EVERY 1 DAY)
     Route: 062
  10. FISH OIL [Suspect]
     Active Substance: FISH OIL
     Indication: Product used for unknown indication
     Dosage: 1 DOSAGE FORM, BID ( 600 EPA/300 DHA)
     Route: 048
  11. FISH OIL [Suspect]
     Active Substance: FISH OIL
     Dosage: 1 EVERY .3 DAYS
     Route: 048
  12. LORAZEPAM [Suspect]
     Active Substance: LORAZEPAM
     Indication: Product used for unknown indication
     Dosage: 1 MILLIGRAM, QD
     Route: 065
  13. LORAZEPAM [Suspect]
     Active Substance: LORAZEPAM
     Dosage: 1 MILLIGRAM, QD
     Route: 065
  14. DIMETHYL SULFONE [Suspect]
     Active Substance: DIMETHYL SULFONE
     Indication: Product used for unknown indication
     Dosage: 1000 MILLIGRAM, TID
     Route: 065
  15. DIMETHYL SULFONE [Suspect]
     Active Substance: DIMETHYL SULFONE
     Dosage: 1000 MILLIGRAM
     Route: 065
  16. PROGESTERONE [Suspect]
     Active Substance: PROGESTERONE
     Indication: Product used for unknown indication
     Dosage: 100 MILLIGRAM
     Route: 065
  17. PROGESTERONE [Suspect]
     Active Substance: PROGESTERONE
     Dosage: UNK
     Route: 048
  18. PROGESTERONE [Suspect]
     Active Substance: PROGESTERONE
     Dosage: 100 MILLIGRAM, QD
     Route: 065
  19. SOMATROPIN [Suspect]
     Active Substance: SOMATROPIN
     Indication: Product used for unknown indication
     Dosage: UNK
     Route: 065
  20. SOMATROPIN [Suspect]
     Active Substance: SOMATROPIN
     Dosage: UNK
     Route: 065
  21. VARENICLINE [Suspect]
     Active Substance: VARENICLINE
     Indication: Product used for unknown indication
     Dosage: 0.5 MILLIGRAM, QD
     Route: 065
  22. VARENICLINE [Suspect]
     Active Substance: VARENICLINE
     Dosage: 150 MILLIGRAM
     Route: 065
  23. VARENICLINE [Suspect]
     Active Substance: VARENICLINE
     Dosage: 1 MILLIGRAM, BID (1 EVERY .5 DAYS)
     Route: 065
  24. VITAMIN D [Suspect]
     Active Substance: VITAMIN D NOS
     Indication: Product used for unknown indication
     Dosage: 1000 INTERNATIONAL UNIT, QD
     Route: 048
  25. BIFIDOBACTERIUM LONGUM [Suspect]
     Active Substance: BIFIDOBACTERIUM LONGUM
     Indication: Product used for unknown indication
     Dosage: UNK
     Route: 048
  26. DOCONEXENT [Suspect]
     Active Substance: DOCONEXENT
     Indication: Product used for unknown indication
     Dosage: UNK
     Route: 065
  27. DOCONEXENT [Suspect]
     Active Substance: DOCONEXENT
     Dosage: 120 MILLIGRAM, BID (1 EVERY 0.5 DAY)
     Route: 048
  28. ICOSAPENT [Suspect]
     Active Substance: ICOSAPENT
     Indication: Product used for unknown indication
     Dosage: UNK
     Route: 048
  29. ICOSAPENT [Suspect]
     Active Substance: ICOSAPENT
     Dosage: 180 MILLIGRAM, BID (1 EVERY .5 DAYS)
     Route: 048
  30. ERGOCALCIFEROL [Suspect]
     Active Substance: ERGOCALCIFEROL
     Indication: Product used for unknown indication
     Dosage: 1000 INTERNATIONAL UNIT
     Route: 048
  31. ERGOCALCIFEROL [Suspect]
     Active Substance: ERGOCALCIFEROL
     Dosage: 1000 INTERNATIONAL UNIT, QD ( 1 EVERY 1 DAYS)
     Route: 048
  32. LACTOBACILLUS ACIDOPHILUS [Suspect]
     Active Substance: LACTOBACILLUS ACIDOPHILUS
     Indication: Product used for unknown indication
     Dosage: UNK
     Route: 048
  33. LACTOBACILLUS ACIDOPHILUS [Suspect]
     Active Substance: LACTOBACILLUS ACIDOPHILUS
     Dosage: 1 EVERY .3 DAYS
     Route: 048
  34. THIOCTIC ACID [Suspect]
     Active Substance: THIOCTIC ACID
     Indication: Product used for unknown indication
     Dosage: UNK
     Route: 065
  35. THIOCTIC ACID [Suspect]
     Active Substance: THIOCTIC ACID
     Dosage: 3.75 MILLIGRAM
     Route: 065
  36. UBIDECARENONE [Suspect]
     Active Substance: UBIDECARENONE
     Indication: Product used for unknown indication
     Dosage: UNK
     Route: 065
  37. UBIDECARENONE [Suspect]
     Active Substance: UBIDECARENONE
     Dosage: 3.75 MILLIGRAM
     Route: 065
  38. VITAMIN A [Suspect]
     Active Substance: VITAMIN A
     Indication: Product used for unknown indication
     Dosage: UNK
     Route: 048
  39. VITAMIN A [Suspect]
     Active Substance: VITAMIN A
     Dosage: 188 MILLIGRAM, BID (1 EVERY .5 DAYS)
     Route: 065
  40. VITAMIN C [Suspect]
     Active Substance: ASCORBIC ACID
     Indication: Product used for unknown indication
     Dosage: UNK
     Route: 048
  41. .ALPHA.-TOCOPHEROL [Suspect]
     Active Substance: .ALPHA.-TOCOPHEROL
     Indication: Product used for unknown indication
     Dosage: UNK
     Route: 065
  42. VITAMIN C [Suspect]
     Active Substance: ASCORBIC ACID
     Indication: Product used for unknown indication
     Dosage: 15 MILLIGRAM, BID (1 EVERY .5 DAYS)
     Route: 048
  43. LINOLEIC ACID [Suspect]
     Active Substance: LINOLEIC ACID
     Indication: Product used for unknown indication
     Dosage: 1 EVERY .3 DAYS
     Route: 048
  44. LACTOBACILLUS RHAMNOSUS [Suspect]
     Active Substance: LACTOBACILLUS RHAMNOSUS
     Indication: Product used for unknown indication
     Dosage: 1 EVERY .3 DAYS
     Route: 065
  45. LACTOBACILLUS CASEI [Suspect]
     Active Substance: LACTOBACILLUS CASEI
     Indication: Product used for unknown indication
     Dosage: 1 EVERY .3 DAYS
     Route: 065
  46. .ALPHA.-TOCOPHEROL, D- [Suspect]
     Active Substance: .ALPHA.-TOCOPHEROL, D-
     Indication: Product used for unknown indication
     Dosage: 7.5 MILLIGRAM
     Route: 048

REACTIONS (6)
  - Drug-induced liver injury [Unknown]
  - Hepatic encephalopathy [Unknown]
  - Hepatic necrosis [Unknown]
  - Hepatic cirrhosis [Unknown]
  - Hepatotoxicity [Unknown]
  - Drug interaction [Unknown]
